FAERS Safety Report 4934866-3 (Version None)
Quarter: 2006Q1

REPORT INFORMATION
  Report Type: 
  Country: None (occurrence: None)
  Receive Date: 20060302
  Receipt Date: 20060220
  Transmission Date: 20060701
  Serious: Yes (Hospitalization, Other)
  Sender: FDA-Public Use
  Company Number: 2005103523

PATIENT
  Age: 76 Year
  Sex: Female

DRUGS (4)
  1. CELEBREX [Suspect]
     Indication: ANKYLOSING SPONDYLITIS
     Dosage: 200 MG (200 MG, 1 IN 1 D), ORAL
     Route: 048
     Dates: end: 20050101
  2. ZOPICLONE [Concomitant]
  3. COZAAR [Concomitant]
  4. SIMVASTATIN [Concomitant]

REACTIONS (3)
  - ANAEMIA [None]
  - OESOPHAGITIS [None]
  - RENAL FAILURE [None]
